FAERS Safety Report 15010596 (Version 1)
Quarter: 2018Q2

REPORT INFORMATION
  Report Type: Spontaneous
  Country: US (occurrence: US)
  Receive Date: 20180529
  Receipt Date: 20180529
  Transmission Date: 20180711
  Serious: Yes (Other)
  Sender: FDA-Public Use
  Company Number: None

PATIENT
  Age: 7 Year
  Sex: Male
  Weight: 24.75 kg

DRUGS (4)
  1. VITAMIN D [Concomitant]
     Active Substance: CHOLECALCIFEROL
  2. NIX [Suspect]
     Active Substance: PERMETHRIN
     Indication: LICE INFESTATION
     Dosage: ?          OTHER FREQUENCY:TWICE 7 DAYS APART;OTHER ROUTE:AS A SHAMPOO?
     Dates: start: 20171001, end: 20171008
  3. GENERIC KEPPRA [Concomitant]
     Active Substance: LEVETIRACETAM
  4. CHILDREN^S VITAMINS [Concomitant]

REACTIONS (2)
  - Idiopathic generalised epilepsy [None]
  - Abnormal behaviour [None]

NARRATIVE: CASE EVENT DATE: 20171009
